FAERS Safety Report 9135506 (Version 2)
Quarter: 2014Q3

REPORT INFORMATION
  Report Type: Spontaneous
  Country: GB (occurrence: GB)
  Receive Date: 20130304
  Receipt Date: 20140702
  Transmission Date: 20150326
  Serious: Yes (Hospitalization)
  Sender: FDA-Public Use
  Company Number: PHHY2013GB019719

PATIENT
  Age: 81 Year
  Sex: Male

DRUGS (1)
  1. WARFARIN [Suspect]
     Active Substance: WARFARIN
     Indication: TRANSIENT ISCHAEMIC ATTACK

REACTIONS (7)
  - Ecchymosis [Recovered/Resolved]
  - Haematoma [Recovered/Resolved]
  - Pallor [Recovered/Resolved]
  - Tachycardia [Recovered/Resolved]
  - Gastrointestinal motility disorder [Recovered/Resolved]
  - Constipation [Recovered/Resolved]
  - Haematochezia [Recovered/Resolved]
